FAERS Safety Report 9649637 (Version 1)
Quarter: 2013Q4

REPORT INFORMATION
  Report Type: Spontaneous
  Country: SE (occurrence: SE)
  Receive Date: 20131028
  Receipt Date: 20131028
  Transmission Date: 20140711
  Serious: Yes (Life-Threatening)
  Sender: FDA-Public Use
  Company Number: ALCN2013SE005354

PATIENT
  Age: 68 Year
  Sex: Female

DRUGS (3)
  1. CYCLOGYL [Suspect]
     Indication: OPHTHALMOLOGICAL EXAMINATION
     Dosage: UNK
     Route: 047
     Dates: start: 20130522, end: 20130522
  2. NEOSYNEPHRINE [Suspect]
     Indication: OPHTHALMOLOGICAL EXAMINATION
     Dosage: UNK
     Route: 047
     Dates: start: 20130522, end: 20130522
  3. TIMOSAN [Concomitant]

REACTIONS (8)
  - Blood pressure increased [Unknown]
  - Heart rate increased [Unknown]
  - Chest discomfort [Unknown]
  - Dyspnoea [Unknown]
  - Mydriasis [Unknown]
  - Panic reaction [Unknown]
  - Fear of death [Unknown]
  - Tremor [Unknown]
